FAERS Safety Report 21286950 (Version 1)
Quarter: 2022Q3

REPORT INFORMATION
  Report Type: Spontaneous
  Country: GB (occurrence: GB)
  Receive Date: 20220902
  Receipt Date: 20220902
  Transmission Date: 20221026
  Serious: Yes (Other)
  Sender: FDA-Public Use
  Company Number: GB-ORGANON-O2209GBR000013

PATIENT
  Sex: Female

DRUGS (2)
  1. NEXPLANON [Suspect]
     Active Substance: ETONOGESTREL
     Indication: Pregnancy
     Dosage: 1 IMPLANT FITTED IN LEFT ARM
     Route: 059
     Dates: start: 201810
  2. NEXPLANON [Suspect]
     Active Substance: ETONOGESTREL
     Dosage: 1 IMPLANT IN RIGHT ARM (OPPOSITE ARM)
     Route: 059

REACTIONS (8)
  - Pregnancy with implant contraceptive [Not Recovered/Not Resolved]
  - Unintended pregnancy [Not Recovered/Not Resolved]
  - Complication associated with device [Not Recovered/Not Resolved]
  - Device placement issue [Not Recovered/Not Resolved]
  - Product use in unapproved indication [Unknown]
  - Device use issue [Unknown]
  - Overdose [Unknown]
  - Incorrect product administration duration [Unknown]

NARRATIVE: CASE EVENT DATE: 20211001
